FAERS Safety Report 9286814 (Version 1)
Quarter: 2013Q2

REPORT INFORMATION
  Report Type: Spontaneous
  Country: US (occurrence: US)
  Receive Date: 20130513
  Receipt Date: 20130513
  Transmission Date: 20140414
  Serious: Yes (Hospitalization)
  Sender: FDA-Public Use
  Company Number: US-ALEXION PHARMACEUTICALS INC.-A201301010

PATIENT
  Age: 0 Year
  Sex: Male

DRUGS (3)
  1. SOLIRIS 300MG [Suspect]
     Dosage: UNK
     Route: 064
  2. ZOFRAN [Suspect]
     Dosage: UNK
     Route: 064
  3. ENOXAPARIN [Suspect]
     Dosage: UNK
     Route: 064

REACTIONS (3)
  - Premature baby [Unknown]
  - Low birth weight baby [Unknown]
  - Foetal exposure during pregnancy [Unknown]
